FAERS Safety Report 4714054-6 (Version None)
Quarter: 2005Q3

REPORT INFORMATION
  Report Type: 
  Country: None (occurrence: None)
  Receive Date: 20050713
  Receipt Date: 20050713
  Transmission Date: 20060218
  Serious: No
  Sender: FDA-Public Use
  Company Number: None

PATIENT
  Age: 45 Year
  Sex: Male

DRUGS (9)
  1. ABILIFY [Suspect]
     Indication: AUTISM SPECTRUM DISORDER
     Dosage: 20 MG DAILY ORAL
     Route: 048
     Dates: start: 20041124, end: 20050605
  2. PRILOSEC [Concomitant]
  3. CALCIUM W/ VITAMIN D [Concomitant]
  4. NASONEX [Concomitant]
  5. LORATADINE [Concomitant]
  6. MULTI-VITAMIN [Concomitant]
  7. BISACODYL TABLETS [Concomitant]
  8. LORAZEPAM [Concomitant]
  9. COZAAR [Concomitant]

REACTIONS (3)
  - ABNORMAL BEHAVIOUR [None]
  - LIBIDO INCREASED [None]
  - PRIAPISM [None]
